FAERS Safety Report 11686933 (Version 1)
Quarter: 2015Q4

REPORT INFORMATION
  Report Type: Spontaneous
  Country: US (occurrence: US)
  Receive Date: 20151030
  Receipt Date: 20151030
  Transmission Date: 20160314
  Serious: No
  Sender: FDA-Public Use
  Company Number: US-BAUSCH-BL-2014-008450

PATIENT
  Age: 74 Year
  Sex: Female
  Weight: 60.84 kg

DRUGS (3)
  1. LOPID [Concomitant]
     Active Substance: GEMFIBROZIL
     Indication: PRODUCT USED FOR UNKNOWN INDICATION
  2. DIOVAN [Concomitant]
     Active Substance: VALSARTAN
     Indication: PRODUCT USED FOR UNKNOWN INDICATION
  3. BEPREVE [Suspect]
     Active Substance: BEPOTASTINE BESILATE
     Indication: EYE PRURITUS
     Route: 047
     Dates: start: 20141006, end: 20141008

REACTIONS (2)
  - Dysgeusia [Recovered/Resolved]
  - Lacrimation increased [Recovered/Resolved]

NARRATIVE: CASE EVENT DATE: 20141007
